FAERS Safety Report 22602600 (Version 2)
Quarter: 2023Q2

REPORT INFORMATION
  Report Type: Report from Study
  Country: US (occurrence: US)
  Receive Date: 20230615
  Receipt Date: 20230616
  Transmission Date: 20230721
  Serious: Yes (Life-Threatening, Hospitalization, Other)
  Sender: FDA-Public Use
  Company Number: US-ABBVIE-5290332

PATIENT
  Age: 66 Year
  Sex: Female
  Weight: 74.842 kg

DRUGS (1)
  1. RINVOQ [Suspect]
     Active Substance: UPADACITINIB
     Indication: Rheumatoid arthritis
     Dosage: 15 MG
     Route: 048
     Dates: start: 20180615, end: 201906

REACTIONS (3)
  - Road traffic accident [Recovering/Resolving]
  - Injury [Unknown]
  - Surgery [Unknown]

NARRATIVE: CASE EVENT DATE: 20190601
